FAERS Safety Report 7592994-0 (Version None)
Quarter: 2011Q3

REPORT INFORMATION
  Report Type: 
  Country: None (occurrence: None)
  Receive Date: 20110706
  Receipt Date: 20110701
  Transmission Date: 20111222
  Serious: Yes (Hospitalization)
  Sender: FDA-Public Use
  Company Number: FR-GLAXOSMITHKLINE-B0680892A

PATIENT
  Sex: Male
  Weight: 72 kg

DRUGS (6)
  1. ROWASA [Concomitant]
     Indication: ENTEROCOLITIS HAEMORRHAGIC
     Dosage: 6UNIT PER DAY
     Route: 065
  2. LORAZEPAM [Concomitant]
     Indication: ENTEROCOLITIS HAEMORRHAGIC
     Dosage: .5UNIT PER DAY
     Route: 048
  3. REQUIP [Suspect]
     Indication: PARKINSON'S DISEASE
     Route: 048
     Dates: start: 20100101, end: 20101001
  4. PREDNISOLONE [Concomitant]
     Indication: ENTEROCOLITIS HAEMORRHAGIC
     Dosage: 1UNIT PER DAY
     Route: 065
  5. DUSPATALIN [Concomitant]
     Indication: ABDOMINAL PAIN
     Dosage: 2UNIT PER DAY
     Route: 065
  6. LANZOR [Concomitant]
     Indication: GASTRITIS
     Dosage: 1UNIT PER DAY
     Route: 065

REACTIONS (1)
  - COLITIS ULCERATIVE [None]
